FAERS Safety Report 9761418 (Version 2)
Quarter: 2013Q4

REPORT INFORMATION
  Report Type: Report from Study
  Country: US (occurrence: US)
  Receive Date: 20131216
  Receipt Date: 20131216
  Transmission Date: 20140711
  Serious: Yes (Other)
  Sender: FDA-Public Use
  Company Number: PHEH2013US023691

PATIENT
  Sex: Female
  Weight: 64.7 kg

DRUGS (6)
  1. GILENYA [Suspect]
     Indication: MULTIPLE SCLEROSIS
     Dosage: 0.5 MG, QD
     Route: 048
     Dates: start: 201110, end: 201311
  2. CITALOPRAM [Concomitant]
     Indication: ANXIETY
     Dosage: 40 MG, QD
     Route: 048
  3. DIAZEPAM [Concomitant]
     Indication: INSOMNIA
     Dosage: 2 MG, AT BED TIME
     Route: 048
  4. HYDROCHLOROTHIAZIDE [Concomitant]
     Indication: HYPERTENSION
     Dosage: 25 MG, QD
     Route: 048
  5. LOSARTAN [Concomitant]
     Indication: HYPERTENSION
     Dosage: 100 MG, QD
     Route: 048
  6. PRAMIPEXOLE [Concomitant]
     Indication: RESTLESS LEGS SYNDROME
     Dosage: 1.5 MG, AT BED TIME
     Route: 048

REACTIONS (6)
  - Neutropenia [Recovering/Resolving]
  - Infection [Recovering/Resolving]
  - White blood cell count decreased [Recovering/Resolving]
  - Lymphocyte percentage decreased [Recovering/Resolving]
  - Monocyte percentage increased [Recovering/Resolving]
  - Neutrophil percentage increased [Recovering/Resolving]
